FAERS Safety Report 9140683 (Version 1)
Quarter: 2013Q1

REPORT INFORMATION
  Report Type: Spontaneous
  Country: FR (occurrence: FR)
  Receive Date: 20130305
  Receipt Date: 20130305
  Transmission Date: 20140127
  Serious: Yes (Hospitalization)
  Sender: FDA-Public Use
  Company Number: FR-009507513-1302FRA012278

PATIENT
  Age: 26 Year
  Sex: Female

DRUGS (3)
  1. ORGALUTRAN [Suspect]
     Indication: IN VITRO FERTILISATION
     Dosage: 0.25 MG, QD
     Route: 058
     Dates: start: 20111119, end: 20111122
  2. OVITRELLE [Suspect]
     Indication: IN VITRO FERTILISATION
     Dosage: 250 MICROGRAM, ONCE
     Route: 058
     Dates: start: 20111123, end: 20111123
  3. GONAL-F [Suspect]
     Indication: IN VITRO FERTILISATION
     Dosage: 150 IU, QD
     Route: 058
     Dates: start: 20111113, end: 20111122

REACTIONS (3)
  - Ovarian hyperstimulation syndrome [Recovered/Resolved]
  - Ascites [Recovered/Resolved]
  - Pleural effusion [Recovered/Resolved]
